FAERS Safety Report 21633794 (Version 1)
Quarter: 2022Q4

REPORT INFORMATION
  Report Type: Report from Study
  Country: US (occurrence: US)
  Receive Date: 20221123
  Receipt Date: 20221123
  Transmission Date: 20230113
  Serious: No
  Sender: FDA-Public Use
  Company Number: US-ABBVIE-22K-163-4491056-00

PATIENT
  Sex: Male
  Weight: 88.45 kg

DRUGS (2)
  1. IMBRUVICA [Suspect]
     Active Substance: IBRUTINIB
     Indication: Chronic lymphocytic leukaemia recurrent
     Dosage: STRENGTH 140 MG
     Route: 048
     Dates: start: 20200612, end: 20210902
  2. IMBRUVICA [Suspect]
     Active Substance: IBRUTINIB
     Indication: Chronic lymphocytic leukaemia recurrent
     Dosage: STRENGTH 140 MG
     Route: 048
     Dates: start: 2021

REACTIONS (2)
  - Diarrhoea [Not Recovered/Not Resolved]
  - SARS-CoV-2 test positive [Unknown]
